FAERS Safety Report 18767848 (Version 3)
Quarter: 2021Q1

REPORT INFORMATION
  Report Type: Spontaneous
  Country: JP (occurrence: JP)
  Receive Date: 20210121
  Receipt Date: 20210328
  Transmission Date: 20210419
  Serious: Yes (Hospitalization)
  Sender: FDA-Public Use
  Company Number: JP-ROCHE-2754362

PATIENT
  Age: 64 Year
  Sex: Female
  Weight: 60 kg

DRUGS (7)
  1. METHOTREXATE. [Suspect]
     Active Substance: METHOTREXATE
     Indication: RHEUMATOID ARTHRITIS
     Dosage: DOSAGE IS UNCERTAIN.
     Route: 048
     Dates: start: 20190606, end: 20200923
  2. ACTEMRA [Suspect]
     Active Substance: TOCILIZUMAB
     Indication: RHEUMATOID ARTHRITIS
     Dosage: DOSAGE IS UNCERTAIN.
     Route: 042
     Dates: start: 20200702, end: 20200827
  3. GOLIMUMAB [Concomitant]
     Active Substance: GOLIMUMAB
     Dosage: DOSAGE IS UNCERTAIN.
     Route: 065
     Dates: start: 201906
  4. ETANERCEPT [Concomitant]
     Active Substance: ETANERCEPT
     Dosage: DOSAGE IS UNCERTAIN.
     Route: 065
     Dates: start: 201906
  5. METHOTREXATE. [Suspect]
     Active Substance: METHOTREXATE
     Dosage: DOSAGE IS UNCERTAIN.
     Route: 048
     Dates: start: 201906
  6. TARLIGE [Concomitant]
     Active Substance: MIROGABALIN BESYLATE
     Dosage: AFTER BREAKFAST AND DINNER
     Route: 048
     Dates: end: 20200923
  7. FOLIAMIN [Concomitant]
     Active Substance: FOLIC ACID
     Dosage: AFTER BREAKFAST, SUNDAYS
     Route: 048
     Dates: end: 20200923

REACTIONS (1)
  - Interstitial lung disease [Recovered/Resolved]

NARRATIVE: CASE EVENT DATE: 20200917
